FAERS Safety Report 5490216-8 (Version None)
Quarter: 2007Q4

REPORT INFORMATION
  Report Type: 
  Country: None (occurrence: None)
  Receive Date: 20071017
  Receipt Date: 20071004
  Transmission Date: 20080405
  Serious: Yes (Other)
  Sender: FDA-Public Use
  Company Number: SPI200700559

PATIENT
  Age: 53 Year
  Sex: Female
  Weight: 98.4 kg

DRUGS (3)
  1. AMITIZA [Suspect]
     Indication: CONSTIPATION
     Dosage: 24 MCG,QD,ORAL
     Route: 048
     Dates: start: 20070625, end: 20070625
  2. ACIPHEX [Concomitant]
  3. FIBERCON (POLYCARBOPHIL CALICUM) [Concomitant]

REACTIONS (8)
  - DIARRHOEA [None]
  - EPISTAXIS [None]
  - FACE INJURY [None]
  - FEELING ABNORMAL [None]
  - HYPOAESTHESIA FACIAL [None]
  - NASAL SEPTUM DISORDER [None]
  - NAUSEA [None]
  - SYNCOPE VASOVAGAL [None]
